FAERS Safety Report 5413388-X (Version None)
Quarter: 2007Q3

REPORT INFORMATION
  Report Type: 
  Country: None (occurrence: None)
  Receive Date: 20070814
  Receipt Date: 20070806
  Transmission Date: 20080115
  Serious: Yes (Hospitalization)
  Sender: FDA-Public Use
  Company Number: FR-JNJFOC-20070800925

PATIENT
  Age: 81 Year
  Sex: Female

DRUGS (3)
  1. TAVANIC [Suspect]
     Indication: INFECTION
     Route: 042
  2. AMOXICILLIN [Suspect]
     Indication: INFECTION
     Route: 042
  3. ANTIVITAMIN K [Concomitant]
     Indication: VENOUS THROMBOSIS
     Route: 065

REACTIONS (1)
  - ACUTE GENERALISED EXANTHEMATOUS PUSTULOSIS [None]
